FAERS Safety Report 24981538 (Version 1)
Quarter: 2025Q1

REPORT INFORMATION
  Report Type: Spontaneous
  Country: US (occurrence: US)
  Receive Date: 20250218
  Receipt Date: 20250218
  Transmission Date: 20250408
  Serious: Yes (Death, Hospitalization, Other)
  Sender: FRESENIUS KABI
  Company Number: US-FreseniusKabi-FK202502558

PATIENT
  Age: 56 Year
  Sex: Female

DRUGS (14)
  1. LINEZOLID [Suspect]
     Active Substance: LINEZOLID
     Indication: Abdominal infection
     Route: 042
  2. LINEZOLID [Suspect]
     Active Substance: LINEZOLID
     Indication: Enterococcal infection
  3. LINEZOLID [Suspect]
     Active Substance: LINEZOLID
     Indication: Abdominal infection
     Route: 048
  4. LINEZOLID [Suspect]
     Active Substance: LINEZOLID
     Indication: Enterococcal infection
  5. DAPTOMYCIN [Concomitant]
     Active Substance: DAPTOMYCIN
     Indication: Abdominal infection
  6. DAPTOMYCIN [Concomitant]
     Active Substance: DAPTOMYCIN
     Indication: Enterococcal infection
  7. CEFTRIAXONE [Concomitant]
     Active Substance: CEFTRIAXONE
     Indication: Abdominal infection
  8. CEFTRIAXONE [Concomitant]
     Active Substance: CEFTRIAXONE
     Indication: Enterococcal infection
  9. METRONIDAZOLE [Concomitant]
     Active Substance: METRONIDAZOLE
     Indication: Abdominal infection
  10. METRONIDAZOLE [Concomitant]
     Active Substance: METRONIDAZOLE
     Indication: Enterococcal infection
  11. CEFDINIR [Concomitant]
     Active Substance: CEFDINIR
     Indication: Abdominal infection
     Route: 048
  12. CEFDINIR [Concomitant]
     Active Substance: CEFDINIR
     Indication: Enterococcal infection
  13. MEROPENEM [Concomitant]
     Active Substance: MEROPENEM
     Indication: Abdominal infection
     Route: 042
  14. MEROPENEM [Concomitant]
     Active Substance: MEROPENEM
     Indication: Enterococcal infection

REACTIONS (3)
  - Pancreatitis acute [Fatal]
  - Lactic acidosis [Not Recovered/Not Resolved]
  - Hypoglycaemia [Unknown]
